FAERS Safety Report 6335146-4 (Version None)
Quarter: 2009Q3

REPORT INFORMATION
  Report Type: 
  Country: None (occurrence: None)
  Receive Date: 20090828
  Receipt Date: 20090828
  Transmission Date: 20100115
  Serious: No
  Sender: FDA-Public Use
  Company Number: None

PATIENT
  Age: 47 Year
  Sex: Female
  Weight: 68.0396 kg

DRUGS (1)
  1. FENTANYL [Suspect]
     Indication: PAIN
     Dosage: 100 MCG EVERY 72 HRS PATCH DIFFERENT MANUFACTURER
     Dates: start: 20090603

REACTIONS (2)
  - DEVICE ADHESION ISSUE [None]
  - DEVICE LEAKAGE [None]
